FAERS Safety Report 23416158 (Version 1)
Quarter: 2024Q1

REPORT INFORMATION
  Report Type: Spontaneous
  Country: US (occurrence: None)
  Receive Date: 20240117
  Receipt Date: 20240117
  Transmission Date: 20240410
  Serious: Yes (Hospitalization)
  Sender: FDA-Public Use
  Company Number: None

PATIENT
  Age: 68 Year
  Sex: Female
  Weight: 64.35 kg

DRUGS (1)
  1. FOTIVDA [Suspect]
     Active Substance: TIVOZANIB HYDROCHLORIDE
     Indication: Renal cell carcinoma
     Dosage: 1.34 MG DAILY ORAL
     Route: 048
     Dates: start: 20231230, end: 20240107

REACTIONS (2)
  - Posterior reversible encephalopathy syndrome [None]
  - Hypertension [None]

NARRATIVE: CASE EVENT DATE: 20240108
